FAERS Safety Report 7210295-7 (Version None)
Quarter: 2011Q1

REPORT INFORMATION
  Report Type: 
  Country: None (occurrence: None)
  Receive Date: 20110103
  Receipt Date: 20110103
  Transmission Date: 20110831
  Serious: Yes (Hospitalization)
  Sender: FDA-Public Use
  Company Number: None

PATIENT
  Age: 68 Year
  Sex: Male

DRUGS (1)
  1. ESZOPICLONE [Suspect]
     Dates: start: 20100110, end: 20101209

REACTIONS (2)
  - MENTAL STATUS CHANGES [None]
  - HALLUCINATION [None]
